FAERS Safety Report 4395383-5 (Version None)
Quarter: 2004Q3

REPORT INFORMATION
  Report Type: 
  Country: None (occurrence: None)
  Receive Date: 20040712
  Receipt Date: 20040712
  Transmission Date: 20050211
  Serious: Yes (Life-Threatening, Hospitalization)
  Sender: FDA-Public Use
  Company Number: None

PATIENT
  Age: 76 Year
  Sex: Female
  Weight: 62.1428 kg

DRUGS (10)
  1. CARTIA 240 MG [Suspect]
     Indication: ARTERIOSPASM CORONARY
     Dosage: 1 TAB DAILY
     Dates: start: 20031109, end: 20031113
  2. CARTIA 240 MG [Suspect]
     Indication: HYPERTENSION
     Dosage: 1 TAB DAILY
     Dates: start: 20031109, end: 20031113
  3. ATENOLOL [Concomitant]
  4. ATACAND [Concomitant]
  5. LASIX [Concomitant]
  6. SYNTHROID [Concomitant]
  7. KCL TAB [Concomitant]
  8. LESCOL [Concomitant]
  9. ECOTRIN [Concomitant]
  10. CLARITIN [Concomitant]

REACTIONS (4)
  - ASTHENIA [None]
  - BRADYCARDIA [None]
  - DIZZINESS [None]
  - PHARMACEUTICAL PRODUCT COMPLAINT [None]
